FAERS Safety Report 9317935 (Version 1)
Quarter: 2013Q2

REPORT INFORMATION
  Report Type: Spontaneous
  Country: US (occurrence: US)
  Receive Date: 20130530
  Receipt Date: 20130530
  Transmission Date: 20140414
  Serious: No
  Sender: FDA-Public Use
  Company Number: US-GLAXOSMITHKLINE-A0996476A

PATIENT
  Age: 91 Year
  Sex: Male

DRUGS (6)
  1. VENTOLIN [Suspect]
     Indication: ATYPICAL PNEUMONIA
     Dosage: 2PUFF FOUR TIMES PER DAY
     Route: 055
     Dates: start: 20121001, end: 20121003
  2. LISINOPRIL [Concomitant]
  3. AMLODIPINE BESYLATE [Concomitant]
  4. METOPROLOL [Concomitant]
  5. WARFARIN [Concomitant]
  6. FINASTERIDE [Concomitant]

REACTIONS (2)
  - Pruritus [Not Recovered/Not Resolved]
  - Chest pain [Unknown]
